FAERS Safety Report 9250804 (Version 2)
Quarter: 2014Q1

REPORT INFORMATION
  Report Type: Spontaneous
  Country: US (occurrence: US)
  Receive Date: 20130424
  Receipt Date: 20140205
  Transmission Date: 20141002
  Serious: No
  Sender: FDA-Public Use
  Company Number: US-ASTRAZENECA-2013SE27183

PATIENT
  Age: 65 Year
  Sex: Female
  Weight: 76.2 kg

DRUGS (8)
  1. NEXIUM [Suspect]
     Indication: GASTROOESOPHAGEAL REFLUX DISEASE
     Route: 048
     Dates: start: 2005
  2. NEXIUM [Suspect]
     Indication: GASTROOESOPHAGEAL REFLUX DISEASE
     Route: 048
     Dates: start: 20090520
  3. TUMS [Concomitant]
  4. ALKA SELTZER [Concomitant]
  5. PEPTO BISMOL [Concomitant]
  6. CRESTOR [Concomitant]
  7. PROVENTIL [Concomitant]
  8. ASPIRIN [Concomitant]

REACTIONS (4)
  - Osteoporosis [Unknown]
  - Bone disorder [Unknown]
  - Spinal compression fracture [Unknown]
  - Rib fracture [Unknown]
